FAERS Safety Report 8575304-1 (Version None)
Quarter: 2012Q2

REPORT INFORMATION
  Report Type: 
  Country: None (occurrence: None)
  Receive Date: 20120423
  Receipt Date: 20100119
  Transmission Date: 20120825
  Serious: Yes (Hospitalization, Other)
  Sender: FDA-Public Use
  Company Number: PHEH2009US13496

PATIENT
  Age: 67 Year
  Sex: Female

DRUGS (7)
  1. FOSAMAX [Concomitant]
  2. BISPHOSPHONATES (BISPHOSPHONATES) [Concomitant]
  3. EPOGEN [Concomitant]
  4. LIPITOR [Concomitant]
  5. CALCIUM CARBONATE [Concomitant]
  6. EXJADE [Suspect]
     Indication: SICKLE CELL ANAEMIA
     Dosage: 1 G, OD, ORAL
     Route: 048
     Dates: start: 20090501, end: 20091001
  7. EXJADE [Suspect]
     Indication: IRON OVERLOAD
     Dosage: 1 G, OD, ORAL
     Route: 048
     Dates: start: 20090501, end: 20091001

REACTIONS (7)
  - DIARRHOEA [None]
  - NAUSEA [None]
  - MELAENA [None]
  - ABDOMINAL PAIN [None]
  - GASTROINTESTINAL HAEMORRHAGE [None]
  - DUODENAL ULCER [None]
  - OEDEMA PERIPHERAL [None]
